FAERS Safety Report 7473555-0 (Version None)
Quarter: 2011Q2

REPORT INFORMATION
  Report Type: 
  Country: None (occurrence: None)
  Receive Date: 20110511
  Receipt Date: 20110505
  Transmission Date: 20111010
  Serious: Yes (Hospitalization)
  Sender: FDA-Public Use
  Company Number: FR-MERCK-1105FRA00030

PATIENT
  Age: 77 Year
  Sex: Female

DRUGS (9)
  1. HYZAAR [Suspect]
     Indication: HYPERTENSION
     Route: 048
     Dates: end: 20110210
  2. PREDNISONE [Suspect]
     Route: 048
     Dates: end: 20110210
  3. ZOLPIDEM TARTRATE [Suspect]
     Route: 048
     Dates: end: 20110210
  4. METHOTREXATE SODIUM [Suspect]
     Route: 058
     Dates: start: 20110119
  5. METHOTREXATE SODIUM [Suspect]
     Indication: SJOGREN'S SYNDROME
     Route: 058
     Dates: start: 20101021, end: 20110118
  6. ROSUVASTATIN CALCIUM [Suspect]
     Indication: HYPERCHOLESTEROLAEMIA
     Route: 048
     Dates: end: 20110208
  7. RABEPRAZOLE SODIUM [Suspect]
     Route: 048
     Dates: end: 20110210
  8. ASPIRIN [Suspect]
     Route: 048
     Dates: end: 20110210
  9. VERAPAMIL HCL [Suspect]
     Route: 048
     Dates: end: 20110210

REACTIONS (1)
  - INTERSTITIAL LUNG DISEASE [None]
